FAERS Safety Report 20727374 (Version 1)
Quarter: 2022Q2

REPORT INFORMATION
  Report Type: Spontaneous
  Country: US (occurrence: None)
  Receive Date: 20220419
  Receipt Date: 20220419
  Transmission Date: 20220720
  Serious: No
  Sender: FDA-Public Use
  Company Number: US-ROCHE-2800292

PATIENT
  Age: 84 Year
  Sex: Female

DRUGS (1)
  1. KADCYLA [Suspect]
     Active Substance: ADO-TRASTUZUMAB EMTANSINE
     Indication: Breast cancer stage III
     Route: 065
     Dates: start: 202011

REACTIONS (2)
  - Blood thyroid stimulating hormone abnormal [Unknown]
  - Thyroxine abnormal [Unknown]
